FAERS Safety Report 5555456-8 (Version None)
Quarter: 2007Q4

REPORT INFORMATION
  Report Type: 
  Country: None (occurrence: None)
  Receive Date: 20071213
  Receipt Date: 20070821
  Transmission Date: 20080405
  Serious: No
  Sender: FDA-Public Use
  Company Number: US-AMGEN-KDL230611

PATIENT
  Sex: Female
  Weight: 79 kg

DRUGS (9)
  1. ENBREL [Suspect]
     Indication: RHEUMATOID ARTHRITIS
     Route: 058
     Dates: start: 20070215
  2. METHOTREXATE [Concomitant]
     Route: 058
     Dates: start: 20060920
  3. BONIVA [Concomitant]
     Dates: start: 20060920
  4. DIOVAN HCT [Concomitant]
     Dates: start: 20050919
  5. PLAQUENIL [Concomitant]
     Dates: start: 20060920
  6. RELAFEN [Concomitant]
     Dates: start: 20060615
  7. PREDNISONE [Concomitant]
     Dates: start: 20050919
  8. ULTRACET [Concomitant]
     Dates: start: 20060615
  9. FOLIC ACID [Concomitant]
     Dates: start: 20060920

REACTIONS (4)
  - DYSPNOEA [None]
  - HAEMATOCHEZIA [None]
  - HAEMORRHOIDS [None]
  - PULMONARY OEDEMA [None]
